FAERS Safety Report 4575332-7 (Version None)
Quarter: 2005Q1

REPORT INFORMATION
  Report Type: 
  Country: None (occurrence: None)
  Receive Date: 20050209
  Receipt Date: 20050131
  Transmission Date: 20050727
  Serious: Yes (Other)
  Sender: FDA-Public Use
  Company Number: PHEH2005US01462

PATIENT
  Age: 65 Year
  Sex: Male

DRUGS (2)
  1. LAMISIL [Suspect]
     Route: 048
     Dates: start: 20040803, end: 20041028
  2. TYLENOL PM [Concomitant]

REACTIONS (21)
  - AFFECTIVE DISORDER [None]
  - AGGRESSION [None]
  - ANGER [None]
  - ANXIETY DISORDER [None]
  - CONVERSION DISORDER [None]
  - CRYING [None]
  - DECREASED APPETITE [None]
  - DEPRESSION [None]
  - DISTURBANCE IN ATTENTION [None]
  - DROP ATTACKS [None]
  - HOMICIDAL IDEATION [None]
  - IMPULSE-CONTROL DISORDER [None]
  - JUDGEMENT IMPAIRED [None]
  - MEMORY IMPAIRMENT [None]
  - MENTAL IMPAIRMENT [None]
  - MIGRAINE [None]
  - NERVOUSNESS [None]
  - OBSESSIVE-COMPULSIVE PERSONALITY DISORDER [None]
  - PANIC ATTACK [None]
  - SUICIDAL IDEATION [None]
  - WEIGHT DECREASED [None]
